FAERS Safety Report 8652613 (Version 4)
Quarter: 2013Q2

REPORT INFORMATION
  Report Type: Spontaneous
  Country: US (occurrence: US)
  Receive Date: 20120706
  Receipt Date: 20130403
  Transmission Date: 20140414
  Serious: Yes (Death)
  Sender: FDA-Public Use
  Company Number: US-CELGENEUS-163-21880-12070122

PATIENT
  Age: 63 Year
  Sex: Female

DRUGS (10)
  1. REVLIMID [Suspect]
     Indication: PLASMA CELL MYELOMA RECURRENT
     Dosage: 5 MILLIGRAM
     Route: 048
     Dates: start: 20110109, end: 20120606
  2. VELCADE [Concomitant]
     Indication: PLASMA CELL MYELOMA
     Dosage: 1.8 MILLIGRAM
     Route: 058
     Dates: start: 20120409, end: 20120607
  3. DECADRON [Concomitant]
     Indication: PLASMA CELL MYELOMA
     Route: 048
     Dates: start: 20120409, end: 20120607
  4. ACYCLOVIR [Concomitant]
     Indication: PLASMA CELL MYELOMA
     Dosage: 800 MILLIGRAM
     Route: 048
     Dates: start: 20120409, end: 20120607
  5. PAMIDRONATE [Concomitant]
     Indication: PLASMA CELL MYELOMA
     Route: 041
     Dates: start: 20120409, end: 20120607
  6. HYDROCODONE [Concomitant]
     Indication: PRODUCT USED FOR UNKNOWN INDICATION
     Route: 065
  7. MAGNESIUM [Concomitant]
     Indication: PRODUCT USED FOR UNKNOWN INDICATION
     Route: 065
  8. OMEPRAZOLE [Concomitant]
     Indication: PRODUCT USED FOR UNKNOWN INDICATION
     Route: 065
  9. POTASSIUM [Concomitant]
     Indication: PRODUCT USED FOR UNKNOWN INDICATION
     Route: 065
  10. COMPAZINE [Concomitant]
     Indication: PRODUCT USED FOR UNKNOWN INDICATION
     Route: 065

REACTIONS (2)
  - Plasma cell myeloma [Fatal]
  - Cerebrovascular accident [Fatal]
